FAERS Safety Report 5527397-3 (Version None)
Quarter: 2007Q4

REPORT INFORMATION
  Report Type: 
  Country: None (occurrence: None)
  Receive Date: 20071123
  Receipt Date: 20071114
  Transmission Date: 20080405
  Serious: Yes (Death, Other)
  Sender: FDA-Public Use
  Company Number: 2007-03793

PATIENT
  Age: 63 Year
  Sex: Female

DRUGS (6)
  1. VELCADE [Suspect]
     Indication: MULTIPLE MYELOMA
  2. THALIDOMIDE [Suspect]
     Indication: MULTIPLE MYELOMA
     Dosage: 200.00 MG, ORAL
     Route: 048
     Dates: start: 20060101, end: 20060701
  3. THALIDOMIDE [Suspect]
     Indication: MULTIPLE MYELOMA
     Dosage: 200.00 MG, ORAL
     Route: 048
     Dates: start: 20060228, end: 20060801
  4. ADRIAMYCIN PFS [Suspect]
     Indication: MULTIPLE MYELOMA
  5. DEXAMETHASONE TAB [Suspect]
     Indication: MULTIPLE MYELOMA
  6. VINCRISTINE [Suspect]
     Indication: MULTIPLE MYELOMA

REACTIONS (2)
  - DISEASE PROGRESSION [None]
  - MENINGITIS [None]
